FAERS Safety Report 13631776 (Version 2)
Quarter: 2017Q2

REPORT INFORMATION
  Report Type: Report from Study
  Country: US (occurrence: US)
  Receive Date: 20170608
  Receipt Date: 20170621
  Transmission Date: 20170830
  Serious: Yes (Hospitalization)
  Sender: FDA-Public Use
  Company Number: US-ACTELION-A-NJ2017-154937

PATIENT
  Age: 84 Year
  Sex: Male
  Weight: 54.42 kg

DRUGS (2)
  1. OPSUMIT [Suspect]
     Active Substance: MACITENTAN
     Indication: PULMONARY ARTERIAL HYPERTENSION
     Dosage: 10 MG, UNK
     Route: 048
     Dates: start: 201703
  2. OPSUMIT [Suspect]
     Active Substance: MACITENTAN
     Dosage: 10 MG, QD
     Route: 048
     Dates: start: 201702, end: 201703

REACTIONS (6)
  - Gastrointestinal haemorrhage [Unknown]
  - Feeling abnormal [Recovered/Resolved]
  - Rehabilitation therapy [Not Recovered/Not Resolved]
  - Memory impairment [Not Recovered/Not Resolved]
  - Clostridium difficile infection [Unknown]
  - Blood pressure decreased [Recovered/Resolved]

NARRATIVE: CASE EVENT DATE: 2017
